FAERS Safety Report 4425096-2 (Version None)
Quarter: 2004Q3

REPORT INFORMATION
  Report Type: 
  Country: None (occurrence: None)
  Receive Date: 20040813
  Receipt Date: 20040804
  Transmission Date: 20050211
  Serious: Yes (Other)
  Sender: FDA-Public Use
  Company Number: PHBS2004US10384

PATIENT
  Age: 77 Year
  Sex: Male

DRUGS (3)
  1. FLUOROMETHOLONE (NVO) [Suspect]
     Indication: OPEN ANGLE GLAUCOMA
  2. BRIMONIDINE TARTRATE [Suspect]
  3. LOTEPREDNOL ETABONATE [Suspect]

REACTIONS (4)
  - CONJUNCTIVITIS ALLERGIC [None]
  - CORNEAL DEPOSITS [None]
  - GIANT PAPILLARY CONJUNCTIVITIS [None]
  - IRIDOCYCLITIS [None]
